FAERS Safety Report 8665758 (Version 3)
Quarter: 2013Q2

REPORT INFORMATION
  Report Type: Spontaneous
  Country: IE (occurrence: IE)
  Receive Date: 20120716
  Receipt Date: 20130510
  Transmission Date: 20140414
  Serious: Yes (Hospitalization, Other)
  Sender: FDA-Public Use
  Company Number: PHHY2012IE059847

PATIENT
  Age: 58 Year
  Sex: Male

DRUGS (1)
  1. GLIVEC [Suspect]
     Indication: GASTROINTESTINAL STROMAL TUMOUR
     Dosage: 400 MG, DAILY

REACTIONS (6)
  - Keratosis obturans [Unknown]
  - Osteonecrosis [Unknown]
  - Inflammation [Unknown]
  - Ear pain [Unknown]
  - Temporomandibular joint syndrome [Unknown]
  - Hypoacusis [Unknown]
